FAERS Safety Report 24694405 (Version 1)
Quarter: 2024Q4

REPORT INFORMATION
  Report Type: Spontaneous
  Country: US (occurrence: US)
  Receive Date: 20241204
  Receipt Date: 20241204
  Transmission Date: 20250115
  Serious: No
  Sender: AUROBINDO
  Company Number: US-AUROBINDO-AUR-APL-2024-022931

PATIENT
  Age: 82 Year
  Sex: Female

DRUGS (2)
  1. GUAIFENESIN [Suspect]
     Active Substance: GUAIFENESIN
     Indication: Secretion discharge
     Dosage: UNK, ONCE A DAY
     Route: 048
     Dates: start: 20240502
  2. GUAIFENESIN [Suspect]
     Active Substance: GUAIFENESIN
     Indication: Cough

REACTIONS (3)
  - Wrong technique in product usage process [Unknown]
  - Product use complaint [Unknown]
  - Product size issue [Unknown]

NARRATIVE: CASE EVENT DATE: 20240503
